FAERS Safety Report 6537262-0 (Version None)
Quarter: 2010Q1

REPORT INFORMATION
  Report Type: 
  Country: None (occurrence: None)
  Receive Date: 20100110
  Receipt Date: 20091230
  Transmission Date: 20100710
  Serious: Yes (Other)
  Sender: FDA-Public Use
  Company Number: 235611J09USA

PATIENT
  Age: 53 Year
  Sex: Female

DRUGS (1)
  1. REBIF [Suspect]
     Indication: MULTIPLE SCLEROSIS
     Dosage: 44 MCG, 3 IN 1 WEEKS, SUBCUTANEOUS
     Route: 058
     Dates: start: 20080421

REACTIONS (6)
  - ANGER [None]
  - INSOMNIA [None]
  - NO THERAPEUTIC RESPONSE [None]
  - PNEUMONIA [None]
  - SINUS DISORDER [None]
  - UPPER RESPIRATORY TRACT INFECTION [None]
